FAERS Safety Report 20217179 (Version 2)
Quarter: 2022Q1

REPORT INFORMATION
  Report Type: Report from Study
  Country: US (occurrence: US)
  Receive Date: 20211222
  Receipt Date: 20220206
  Transmission Date: 20220423
  Serious: No
  Sender: FDA-Public Use
  Company Number: US-NOVARTISTESTPH-NVSC2021US293753

PATIENT
  Sex: Female

DRUGS (3)
  1. COSENTYX [Suspect]
     Active Substance: SECUKINUMAB
     Indication: Psoriasis
     Dosage: ONCE A WEEK
     Route: 058
  2. COSENTYX [Suspect]
     Active Substance: SECUKINUMAB
     Dosage: UNK
     Route: 065
  3. COSENTYX [Suspect]
     Active Substance: SECUKINUMAB
     Dosage: UNK
     Route: 065

REACTIONS (11)
  - Pyrexia [Unknown]
  - Abdominal pain upper [Unknown]
  - Arthralgia [Unknown]
  - Dehydration [Unknown]
  - Lymphadenitis [Unknown]
  - Oropharyngeal pain [Unknown]
  - Dry skin [Unknown]
  - Vomiting [Unknown]
  - Gastrointestinal pain [Unknown]
  - Upper respiratory tract infection [Unknown]
  - Diarrhoea [Unknown]
